FAERS Safety Report 12053057 (Version 2)
Quarter: 2017Q1

REPORT INFORMATION
  Report Type: Spontaneous
  Country: US (occurrence: US)
  Receive Date: 20160209
  Receipt Date: 20170105
  Transmission Date: 20170428
  Serious: No
  Sender: FDA-Public Use
  Company Number: US-ENDO PHARMACEUTICALS INC.-2015-003789

PATIENT
  Age: 74 Year
  Sex: Male
  Weight: 84.44 kg

DRUGS (2)
  1. FORTESTA [Suspect]
     Active Substance: TESTOSTERONE
     Indication: BLOOD TESTOSTERONE DECREASED
     Dosage: APPLY 2 PUMPS TO EACH THIGH ONCE DAILY
     Route: 061
     Dates: start: 20150609, end: 20151010
  2. FORTESTA [Suspect]
     Active Substance: TESTOSTERONE
     Dosage: APPLY 3 PUMPS TO EACH THIGH ONCE DAILY
     Route: 061
     Dates: start: 20151029

REACTIONS (2)
  - Blood testosterone decreased [Unknown]
  - Libido decreased [Unknown]

NARRATIVE: CASE EVENT DATE: 2015
